FAERS Safety Report 10182507 (Version 1)
Quarter: 2014Q2

REPORT INFORMATION
  Report Type: Spontaneous
  Country: US (occurrence: None)
  Receive Date: 20140519
  Receipt Date: 20140519
  Transmission Date: 20141212
  Serious: Yes (Hospitalization)
  Sender: FDA-Public Use
  Company Number: None

PATIENT
  Age: 63 Year
  Sex: Female
  Weight: 95 kg

DRUGS (1)
  1. XARELTO 20MG JANSSEN [Suspect]
     Indication: ATRIAL FIBRILLATION
     Dosage: 1, QD, ORAL
     Route: 048
     Dates: start: 20140404, end: 20140505

REACTIONS (3)
  - Anaemia [None]
  - Upper gastrointestinal haemorrhage [None]
  - Melaena [None]
